FAERS Safety Report 21199438 (Version 3)
Quarter: 2023Q2

REPORT INFORMATION
  Report Type: Spontaneous
  Country: CA (occurrence: CA)
  Receive Date: 20220811
  Receipt Date: 20230428
  Transmission Date: 20230722
  Serious: Yes (Hospitalization, Other)
  Sender: FDA-Public Use
  Company Number: CA-MLMSERVICE-20220728-3700070-1

PATIENT
  Age: 30 Year
  Sex: Female

DRUGS (1)
  1. PROGESTERONE [Suspect]
     Active Substance: PROGESTERONE
     Indication: Contraception
     Dosage: UNK (EXOGENOUS HIGH-DOSE)
     Route: 065

REACTIONS (3)
  - Decidual cast [Recovered/Resolved]
  - Dysmenorrhoea [Recovered/Resolved]
  - Product use in unapproved indication [Unknown]
